FAERS Safety Report 18775585 (Version 1)
Quarter: 2021Q1

REPORT INFORMATION
  Report Type: Spontaneous
  Country: US (occurrence: US)
  Receive Date: 20210122
  Receipt Date: 20210122
  Transmission Date: 20210419
  Serious: No
  Sender: FDA-Public Use
  Company Number: US-GALDERMA-US2020042779

PATIENT
  Sex: Female

DRUGS (1)
  1. ADAPALENE AND BENZOYL PEROXIDE GEL, 0.1%/2.5% [Suspect]
     Active Substance: ADAPALENE\BENZOYL PEROXIDE
     Indication: ACNE
     Dosage: 0.1%/2.5%
     Route: 061

REACTIONS (2)
  - Drug ineffective [Unknown]
  - Acne [Unknown]
